FAERS Safety Report 11114176 (Version 1)
Quarter: 2015Q2

REPORT INFORMATION
  Report Type: Spontaneous
  Country: BR (occurrence: BR)
  Receive Date: 20150514
  Receipt Date: 20150514
  Transmission Date: 20150821
  Serious: Yes (Life-Threatening, Hospitalization, Other)
  Sender: FDA-Public Use
  Company Number: PHHY2015BR058248

PATIENT
  Sex: Female

DRUGS (1)
  1. AFINITOR [Suspect]
     Active Substance: EVEROLIMUS
     Indication: RENAL CANCER
     Route: 065

REACTIONS (7)
  - Blood urine present [Unknown]
  - Loss of consciousness [Unknown]
  - Confusional state [Unknown]
  - Amnesia [Unknown]
  - Blood creatinine increased [Unknown]
  - Hypoglycaemia [Unknown]
  - Flushing [Unknown]
